FAERS Safety Report 6067306-4 (Version None)
Quarter: 2009Q1

REPORT INFORMATION
  Report Type: 
  Country: None (occurrence: None)
  Receive Date: 20090204
  Receipt Date: 20090204
  Transmission Date: 20090719
  Serious: No
  Sender: FDA-Public Use
  Company Number: None

PATIENT
  Age: 63 Year
  Sex: Male
  Weight: 136.98 kg

DRUGS (1)
  1. TERBINAFINE HCL [Suspect]
     Indication: FUNGAL INFECTION
     Dosage: SMALL AMOUNT BID TOP
     Route: 061
     Dates: start: 20090123, end: 20090203

REACTIONS (3)
  - ERYTHEMA [None]
  - RASH [None]
  - SKIN BURNING SENSATION [None]
